FAERS Safety Report 24593881 (Version 1)
Quarter: 2024Q4

REPORT INFORMATION
  Report Type: Spontaneous
  Country: US (occurrence: None)
  Receive Date: 20241108
  Receipt Date: 20241108
  Transmission Date: 20250115
  Serious: Yes (Life-Threatening, Hospitalization, Disabling, Other)
  Sender: Public
  Company Number: None

PATIENT
  Age: 51 Year
  Sex: Female

DRUGS (1)
  1. GOODYS [Suspect]
     Active Substance: ACETAMINOPHEN\ASPIRIN\CAFFEINE
     Indication: Headache
     Route: 048
     Dates: start: 20240816, end: 20241025

REACTIONS (3)
  - Ulcer [None]
  - Scar [None]
  - Small intestinal haemorrhage [None]

NARRATIVE: CASE EVENT DATE: 20240927
